FAERS Safety Report 13132011 (Version 1)
Quarter: 2017Q1

REPORT INFORMATION
  Report Type: Report from Study
  Country: IT (occurrence: IT)
  Receive Date: 20170119
  Receipt Date: 20170119
  Transmission Date: 20170428
  Serious: Yes (Other)
  Sender: FDA-Public Use
  Company Number: IT-GILEAD-2017-0253652

PATIENT
  Age: 50 Year
  Sex: Female

DRUGS (1)
  1. ELVITEGRAVIR [Suspect]
     Active Substance: ELVITEGRAVIR
     Indication: HIV INFECTION
     Dosage: UNK
     Route: 065
     Dates: start: 2016, end: 2016

REACTIONS (2)
  - Drug ineffective [Unknown]
  - HIV viraemia [Unknown]
